FAERS Safety Report 5677434-0 (Version None)
Quarter: 2008Q1

REPORT INFORMATION
  Report Type: 
  Country: None (occurrence: None)
  Receive Date: 20080324
  Receipt Date: 20080320
  Transmission Date: 20080703
  Serious: Yes (Other)
  Sender: FDA-Public Use
  Company Number: DE-BRISTOL-MYERS SQUIBB COMPANY-13623491

PATIENT
  Age: 38 Year
  Sex: Female

DRUGS (2)
  1. ABILIFY [Suspect]
     Dosage: 15MG/D WAS ALSO TAKEN PREVIOUSLY FOR 6MONTHS
     Route: 048
     Dates: start: 20060501, end: 20061001
  2. RISPERDAL [Suspect]
     Dates: start: 19990101

REACTIONS (3)
  - ABORTION SPONTANEOUS [None]
  - AMNIORRHEXIS [None]
  - PREGNANCY [None]
